FAERS Safety Report 5217455-5 (Version None)
Quarter: 2007Q1

REPORT INFORMATION
  Report Type: 
  Country: None (occurrence: None)
  Receive Date: 20070124
  Receipt Date: 20060418
  Transmission Date: 20070707
  Serious: No
  Sender: FDA-Public Use
  Company Number: US-GLAXOSMITHKLINE-A0596761A

PATIENT
  Age: 49 Year
  Sex: Male

DRUGS (7)
  1. PAXIL CR [Suspect]
     Indication: PANIC DISORDER
     Dosage: 50MG PER DAY
     Route: 048
     Dates: start: 20040901, end: 20060201
  2. PAXIL [Suspect]
     Indication: PANIC DISORDER
     Dosage: 40MG UNKNOWN
     Route: 048
  3. WELLBUTRIN XL [Suspect]
     Indication: DRUG USE FOR UNKNOWN INDICATION
     Dosage: 150MG PER DAY
     Route: 048
     Dates: start: 20041001, end: 20050401
  4. BUSPIRONE HCL [Concomitant]
  5. VISTARIL [Concomitant]
  6. KLONOPIN [Concomitant]
  7. EFFEXOR XR [Concomitant]
     Dosage: 75MG PER DAY

REACTIONS (3)
  - PARAESTHESIA [None]
  - PSYCHOMOTOR HYPERACTIVITY [None]
  - SEXUAL DYSFUNCTION [None]
